FAERS Safety Report 5515823-5 (Version None)
Quarter: 2007Q4

REPORT INFORMATION
  Report Type: 
  Country: None (occurrence: None)
  Receive Date: 20071114
  Receipt Date: 20071105
  Transmission Date: 20080405
  Serious: Yes (Other)
  Sender: FDA-Public Use
  Company Number: DEWYE041017JUL07

PATIENT
  Sex: Female
  Weight: 56 kg

DRUGS (2)
  1. VENLAFAXINE HCL [Suspect]
     Indication: AFFECTIVE DISORDER
     Route: 048
     Dates: start: 19950101, end: 20070101
  2. VENLAFAXINE HCL [Suspect]
     Indication: OBSESSIVE THOUGHTS
     Route: 048
     Dates: start: 20070101

REACTIONS (5)
  - ABORTION SPONTANEOUS [None]
  - BLOOD PRESSURE INCREASED [None]
  - DRUG EXPOSURE DURING PREGNANCY [None]
  - OVARIAN ADENOMA [None]
  - PLACENTAL DISORDER [None]
